FAERS Safety Report 19090993 (Version 4)
Quarter: 2021Q2

REPORT INFORMATION
  Report Type: Report from Study
  Country: None (occurrence: ES)
  Receive Date: 20210405
  Receipt Date: 20210509
  Transmission Date: 20210717
  Serious: Yes (Hospitalization, Other)
  Sender: FDA-Public Use
  Company Number: ES-ABBVIE-21K-144-3835996-00

PATIENT
  Age: 71 Year
  Sex: Male
  Weight: 71 kg

DRUGS (4)
  1. DUODOPA [Suspect]
     Active Substance: CARBIDOPA\LEVODOPA
     Dosage: CONTINUOUS DOSE IS INCREASED BY 0.3 ML
     Route: 050
     Dates: start: 20210330, end: 2021
  2. DUODOPA [Suspect]
     Active Substance: CARBIDOPA\LEVODOPA
     Indication: PARKINSON^S DISEASE
     Route: 050
     Dates: start: 20190513, end: 202103
  3. DUODOPA [Suspect]
     Active Substance: CARBIDOPA\LEVODOPA
     Dosage: DOSE DECREASED
     Route: 050
     Dates: start: 2021
  4. MADOPAR [Concomitant]
     Active Substance: BENSERAZIDE HYDROCHLORIDE\LEVODOPA
     Indication: PRODUCT USED FOR UNKNOWN INDICATION
     Route: 048
     Dates: start: 20210325

REACTIONS (12)
  - Anaemia [Recovered/Resolved with Sequelae]
  - Peripheral venous disease [Unknown]
  - Oedema peripheral [Unknown]
  - Disorientation [Unknown]
  - Pain [Unknown]
  - Post procedural infection [Recovering/Resolving]
  - Post procedural sepsis [Unknown]
  - Device difficult to use [Recovered/Resolved]
  - Unevaluable event [Unknown]
  - Post procedural complication [Recovered/Resolved]
  - Haemorrhage [Unknown]
  - Pain in extremity [Recovered/Resolved with Sequelae]

NARRATIVE: CASE EVENT DATE: 2021
